FAERS Safety Report 5256805-0 (Version None)
Quarter: 2007Q1

REPORT INFORMATION
  Report Type: 
  Country: None (occurrence: None)
  Receive Date: 20070306
  Receipt Date: 20070301
  Transmission Date: 20070707
  Serious: Yes (Hospitalization)
  Sender: FDA-Public Use
  Company Number: US-BOEHRINGER INGELHEIM PHARMACEUTICALS, INC.-2007-DE-01282GD

PATIENT
  Sex: Male

DRUGS (3)
  1. MOBIC [Suspect]
     Indication: ARTHRALGIA
  2. COUMADIN [Suspect]
     Indication: ISCHAEMIC HEART DISEASE PROPHYLAXIS
  3. PLAVIX [Suspect]
     Indication: ISCHAEMIC HEART DISEASE PROPHYLAXIS

REACTIONS (1)
  - RECTAL HAEMORRHAGE [None]
